FAERS Safety Report 20480640 (Version 2)
Quarter: 2022Q1

REPORT INFORMATION
  Report Type: Spontaneous
  Country: FR (occurrence: FR)
  Receive Date: 20220216
  Receipt Date: 20220303
  Transmission Date: 20220423
  Serious: Yes (Hospitalization, Other)
  Sender: FDA-Public Use
  Company Number: FR-PFM-2022-01031

PATIENT
  Age: 76 Year
  Sex: Male

DRUGS (2)
  1. BRAFTOVI [Suspect]
     Active Substance: ENCORAFENIB
     Indication: Malignant melanoma
     Dosage: UNK
     Route: 065
     Dates: start: 202110
  2. MEKTOVI [Suspect]
     Active Substance: BINIMETINIB
     Indication: Malignant melanoma
     Dosage: UNK
     Route: 065
     Dates: start: 202110

REACTIONS (2)
  - Pachymeningitis [Unknown]
  - Acute polyneuropathy [Unknown]

NARRATIVE: CASE EVENT DATE: 20220101
